FAERS Safety Report 9375552 (Version 1)
Quarter: 2013Q2

REPORT INFORMATION
  Report Type: Spontaneous
  Country: JP (occurrence: JP)
  Receive Date: 20130628
  Receipt Date: 20130628
  Transmission Date: 20140414
  Serious: No
  Sender: FDA-Public Use
  Company Number: JP-UCBSA-090354

PATIENT
  Age: 84 Year
  Sex: Female

DRUGS (5)
  1. E KEPPRA [Suspect]
     Indication: EPILEPSY
     Route: 048
     Dates: start: 20130513, end: 20130516
  2. TEGRETOL [Concomitant]
     Dosage: DAILY DOSE: 100 MG
     Dates: start: 20130509
  3. BUP-4 [Concomitant]
     Dosage: DAILY DOSE : 10 MG
     Route: 048
  4. PLETAAL [Concomitant]
     Dosage: DAILY DOSE : 200 MG
     Route: 048
  5. LANSOPRAZOLE [Concomitant]
     Dosage: DAILY DOSE : 15 MG

REACTIONS (1)
  - Platelet count decreased [Recovered/Resolved]
